FAERS Safety Report 24757290 (Version 1)
Quarter: 2024Q4

REPORT INFORMATION
  Report Type: Spontaneous
  Country: GB (occurrence: GB)
  Receive Date: 20241220
  Receipt Date: 20241220
  Transmission Date: 20250115
  Serious: Yes (Other)
  Sender: TEVA
  Company Number: GB-MHRA-TPP49579907C9978269YC1733931989875

PATIENT
  Age: 6 Year
  Sex: Male
  Weight: 20 kg

DRUGS (3)
  1. MONTELUKAST [Suspect]
     Active Substance: MONTELUKAST SODIUM
     Indication: Ill-defined disorder
     Dosage: AT NIGHT, SUGAR FREE TABLETS, TPP YC - PLEASE RECLASSIFY
     Route: 065
     Dates: start: 20241126
  2. ALBUTEROL [Concomitant]
     Active Substance: ALBUTEROL
     Indication: Ill-defined disorder
     Dosage: TIME INTERVAL: AS NECESSARY: UP TO 4 TIMES/DAY OR A..., TPP YC - PLEASE RECLASSIFY
     Route: 055
     Dates: start: 20240407
  3. BECLOMETHASONE DIPROPIONATE [Concomitant]
     Active Substance: BECLOMETHASONE DIPROPIONATE
     Indication: Ill-defined disorder
     Dosage: PUFFS, TPP YC - PLEASE RECLASSIFY
     Dates: start: 20240407

REACTIONS (3)
  - Tachycardia [Unknown]
  - Pyrexia [Unknown]
  - Vomiting [Recovered/Resolved]
